FAERS Safety Report 16551474 (Version 4)
Quarter: 2021Q3

REPORT INFORMATION
  Report Type: Report from Study
  Country: US (occurrence: US)
  Receive Date: 20190710
  Receipt Date: 20210920
  Transmission Date: 20211014
  Serious: Yes (Hospitalization, Other)
  Sender: FDA-Public Use
  Company Number: US-TEVA-2019-US-1073032

PATIENT
  Age: 5 Year
  Sex: Male
  Weight: 21.9 kg

DRUGS (31)
  1. METHOTREXATE. [Suspect]
     Active Substance: METHOTREXATE
     Indication: ACUTE LYMPHOCYTIC LEUKAEMIA
     Route: 048
     Dates: start: 202107
  2. METHOTREXATE. [Suspect]
     Active Substance: METHOTREXATE
     Dosage: WEEKLY
     Route: 048
     Dates: start: 20180904, end: 20210716
  3. METHOTREXATE. [Suspect]
     Active Substance: METHOTREXATE
     Dosage: HIGH DOSE ON 07?JAN?2019 AND LAST DOSE PRIOR TO FIFTH OCCURRENCE: 28?MAY?2019
     Route: 042
  4. MERCAPTOPURINE. [Suspect]
     Active Substance: MERCAPTOPURINE
     Indication: ACUTE LYMPHOCYTIC LEUKAEMIA
     Dosage: 36 MG QD ON 26?NOV?2018
     Route: 048
  5. THIOGUANINE [Suspect]
     Active Substance: THIOGUANINE
     Indication: ACUTE LYMPHOCYTIC LEUKAEMIA
     Dosage: 38 MG QD; LAST DOSE PRIOR TO FIFTH OCCURRENCE: 02?JUN?2019
     Route: 048
     Dates: start: 20190520
  6. VINCRISTINE [Suspect]
     Active Substance: VINCRISTINE
     Dosage: 0.9 MG ONE TIME ON 29?OCT?2018
     Route: 042
  7. METHOTREXATE. [Suspect]
     Active Substance: METHOTREXATE
     Route: 037
     Dates: end: 20181008
  8. CYCLOPHOSPHAMIDE. [Suspect]
     Active Substance: CYCLOPHOSPHAMIDE
     Indication: ACUTE LYMPHOCYTIC LEUKAEMIA
     Dosage: LAST DOSE PRIOR TO FIFTH OCCURRENCE: 20?MAY?2019
     Route: 042
     Dates: start: 20181008
  9. LEUCOVORIN. [Suspect]
     Active Substance: LEUCOVORIN
     Indication: ACUTE LYMPHOCYTIC LEUKAEMIA
     Dosage: ON 09?JAN?2019
     Route: 042
  10. MERCAPTOPURINE. [Suspect]
     Active Substance: MERCAPTOPURINE
     Dosage: 25 MG MON TO TUE/50 MILLIGRAM WED?SUN
     Route: 048
     Dates: start: 20181008, end: 20210716
  11. RUXOLITINIB [Suspect]
     Active Substance: RUXOLITINIB
     Indication: ACUTE LYMPHOCYTIC LEUKAEMIA
     Dosage: 60 MILLIGRAM DAILY; LAST DOSE PRIOR TO FIFTH OCCURRENCE: 02?JUN?2019
     Route: 048
     Dates: start: 20181008, end: 20181021
  12. RUXOLITINIB [Suspect]
     Active Substance: RUXOLITINIB
     Dosage: 60 MILLIGRAM DAILY; ON 26?NOV?2018
     Route: 048
  13. RUXOLITINIB [Suspect]
     Active Substance: RUXOLITINIB
     Dosage: 80 MILLIGRAM DAILY;
     Route: 048
     Dates: start: 20210804
  14. CYTARABINE. [Suspect]
     Active Substance: CYTARABINE
     Indication: ACUTE LYMPHOCYTIC LEUKAEMIA
     Dosage: 45 MILLIGRAM DAILY; 45 MG OD
     Route: 042
     Dates: start: 20181008
  15. ACETAMINOPHEN. [Concomitant]
     Active Substance: ACETAMINOPHEN
  16. VINCRISTINE [Suspect]
     Active Substance: VINCRISTINE
     Indication: ACUTE LYMPHOCYTIC LEUKAEMIA
     Route: 042
     Dates: start: 20181022
  17. METHOTREXATE. [Suspect]
     Active Substance: METHOTREXATE
     Indication: ACUTE LYMPHOCYTIC LEUKAEMIA
     Dosage: 10 MG ONE TIME
     Route: 037
     Dates: start: 20181008, end: 20181022
  18. METHOTREXATE. [Suspect]
     Active Substance: METHOTREXATE
     Dosage: 10 MG ONE TIME ON 29?OCT?2018
     Route: 037
  19. MERCAPTOPURINE. [Suspect]
     Active Substance: MERCAPTOPURINE
     Dosage: 15 MG QHS FROM 07?JAN?2019 TO 14?MAR?2019
     Route: 048
  20. METHOTREXATE. [Suspect]
     Active Substance: METHOTREXATE
     Dosage: WEEKLY
     Route: 048
     Dates: start: 20210729
  21. RUXOLITINIB [Suspect]
     Active Substance: RUXOLITINIB
     Dosage: 60 MILLIGRAM DAILY; ON 20?MAY?2019
     Route: 048
  22. PEGASPARGASE [Suspect]
     Active Substance: PEGASPARGASE
     Indication: ACUTE LYMPHOCYTIC LEUKAEMIA
     Route: 042
     Dates: start: 20181022, end: 20181022
  23. PEGASPARGASE [Suspect]
     Active Substance: PEGASPARGASE
     Dosage: LAST DOSE
     Route: 042
     Dates: end: 20190603
  24. VINCRISTINE [Suspect]
     Active Substance: VINCRISTINE
     Dosage: LAST DOSE PRIOR TO FIFTH OCCURRENCE
     Route: 042
     Dates: end: 20190603
  25. VINCRISTINE [Suspect]
     Active Substance: VINCRISTINE
     Dosage: ONCE
     Route: 042
     Dates: start: 20181022
  26. RUXOLITINIB [Suspect]
     Active Substance: RUXOLITINIB
     Dosage: 80 MILLIGRAM DAILY;
     Route: 048
     Dates: start: 20181008, end: 20210716
  27. PREDNISONE. [Suspect]
     Active Substance: PREDNISONE
     Indication: ACUTE LYMPHOCYTIC LEUKAEMIA
     Route: 048
     Dates: start: 20190904
  28. MERCAPTOPURINE. [Suspect]
     Active Substance: MERCAPTOPURINE
     Route: 048
     Dates: end: 202107
  29. MERCAPTOPURINE. [Suspect]
     Active Substance: MERCAPTOPURINE
     Dosage: MON?SAT
     Route: 048
     Dates: start: 20210729
  30. RUXOLITINIB [Suspect]
     Active Substance: RUXOLITINIB
     Route: 048
     Dates: end: 202107
  31. CYTARABINE. [Suspect]
     Active Substance: CYTARABINE
     Dosage: LAST DOSE
     Route: 042
     Dates: start: 20181021

REACTIONS (3)
  - Febrile neutropenia [Recovered/Resolved]
  - Neutrophil count decreased [Not Recovered/Not Resolved]
  - Febrile neutropenia [Recovered/Resolved]

NARRATIVE: CASE EVENT DATE: 2019
